FAERS Safety Report 20782527 (Version 1)
Quarter: 2022Q2

REPORT INFORMATION
  Report Type: Spontaneous
  Country: US (occurrence: US)
  Receive Date: 20220504
  Receipt Date: 20220504
  Transmission Date: 20220721
  Serious: Yes (Hospitalization)
  Sender: FDA-Public Use
  Company Number: US-VERTEX PHARMACEUTICALS-2022-006390

PATIENT
  Age: 3 Year
  Sex: Female

DRUGS (1)
  1. ORKAMBI [Suspect]
     Active Substance: IVACAFTOR\LUMACAFTOR
     Indication: Cystic fibrosis
     Dosage: 100 MG / 125 MG
     Route: 048

REACTIONS (6)
  - Bronchiectasis [Unknown]
  - Liver function test increased [Unknown]
  - Abdominal distension [Unknown]
  - Pyrexia [Unknown]
  - Anaemia [Unknown]
  - Hypoxia [Unknown]

NARRATIVE: CASE EVENT DATE: 20201220
